FAERS Safety Report 25428686 (Version 7)
Quarter: 2025Q3

REPORT INFORMATION
  Report Type: Report from Study
  Country: CA (occurrence: CA)
  Receive Date: 20250612
  Receipt Date: 20250720
  Transmission Date: 20251021
  Serious: Yes (Hospitalization, Other)
  Sender: HLS THERAPEUTICS
  Company Number: CA-HLS-202501494

PATIENT
  Age: 60 Year
  Sex: Male

DRUGS (2)
  1. CLOZARIL [Suspect]
     Active Substance: CLOZAPINE
     Indication: Schizoaffective disorder
     Route: 065
     Dates: end: 20250715
  2. CLOZARIL [Suspect]
     Active Substance: CLOZAPINE
     Indication: Schizoaffective disorder
     Route: 048
     Dates: start: 20100906, end: 20250610

REACTIONS (17)
  - Psychiatric decompensation [Unknown]
  - Neutrophil count decreased [Recovered/Resolved]
  - Chronic kidney disease [Unknown]
  - Decreased appetite [Unknown]
  - Sexually inappropriate behaviour [Unknown]
  - Dehydration [Unknown]
  - Hypotension [Unknown]
  - Influenza [Unknown]
  - Palliative care [Unknown]
  - Delusion [Not Recovered/Not Resolved]
  - Schizophrenia [Not Recovered/Not Resolved]
  - Product use in unapproved indication [Unknown]
  - Suicidal ideation [Unknown]
  - Pneumonia [Unknown]
  - Treatment noncompliance [Unknown]
  - Cholinergic rebound syndrome [Unknown]
  - White blood cell count decreased [Recovered/Resolved]

NARRATIVE: CASE EVENT DATE: 20250603
